FAERS Safety Report 6789871 (Version 2)
Quarter: 2014Q4

REPORT INFORMATION
  Report Type: Spontaneous
  Country: SI (occurrence: SI)
  Receive Date: 20081017
  Receipt Date: 20141217
  Transmission Date: 20150529
  Serious: Yes (Hospitalization, Other)
  Sender: FDA-Public Use
  Company Number: SI-BAYER-200828191GPV

PATIENT
  Age: 18 Year
  Sex: Female

DRUGS (1)
  1. INTERFERON BETA- 1B [Suspect]
     Active Substance: INTERFERON BETA-1B
     Indication: RELAPSING-REMITTING MULTIPLE SCLEROSIS
     Dosage: UNK
     Route: 065

REACTIONS (9)
  - Pulmonary arterial hypertension [Not Recovered/Not Resolved]
  - Dyspnoea exertional [Unknown]
  - QRS axis abnormal [Unknown]
  - Right ventricular hypertrophy [Unknown]
  - Dilatation ventricular [Unknown]
  - Sinus tachycardia [Unknown]
  - Right ventricular failure [Unknown]
  - Oedema peripheral [Unknown]
  - Malaise [Unknown]
